FAERS Safety Report 5681547-7 (Version None)
Quarter: 2008Q1

REPORT INFORMATION
  Report Type: 
  Country: None (occurrence: None)
  Receive Date: 20080326
  Receipt Date: 20070913
  Transmission Date: 20080703
  Serious: No
  Sender: FDA-Public Use
  Company Number: US-BAYER-US-2007-005546

PATIENT
  Age: 26 Year
  Sex: Female
  Weight: 54 kg

DRUGS (3)
  1. MIRENA [Suspect]
     Indication: CONTRACEPTION
     Route: 015
     Dates: start: 20061017, end: 20070315
  2. PHENTERMINE [Concomitant]
     Dosage: UNIT DOSE: 75 MG
  3. NO CONCOMITANT MEDICATION [Concomitant]

REACTIONS (5)
  - ABDOMINAL DISTENSION [None]
  - ABDOMINAL PAIN [None]
  - COITAL BLEEDING [None]
  - OVARIAN CYST [None]
  - VAGINAL HAEMORRHAGE [None]
